FAERS Safety Report 12616906 (Version 3)
Quarter: 2017Q2

REPORT INFORMATION
  Report Type: Report from Study
  Country: GB (occurrence: GB)
  Receive Date: 20160802
  Receipt Date: 20170613
  Transmission Date: 20170830
  Serious: Yes (Hospitalization)
  Sender: FDA-Public Use
  Company Number: PHFR2016GB006267

PATIENT
  Age: 39 Year
  Sex: Male

DRUGS (1)
  1. GILENYA [Suspect]
     Active Substance: FINGOLIMOD HYDROCHLORIDE
     Indication: MULTIPLE SCLEROSIS
     Dosage: 0.5 MG, (28 CAPSULE)
     Route: 048
     Dates: start: 20160128, end: 20160720

REACTIONS (6)
  - Fatigue [Recovered/Resolved]
  - Blood albumin decreased [Unknown]
  - Protein urine present [Unknown]
  - Cough [Unknown]
  - Pyrexia [Recovered/Resolved]
  - Microscopic polyangiitis [Not Recovered/Not Resolved]

NARRATIVE: CASE EVENT DATE: 20160610
